FAERS Safety Report 12334533 (Version 3)
Quarter: 2016Q3

REPORT INFORMATION
  Report Type: Spontaneous
  Country: US (occurrence: US)
  Receive Date: 20160504
  Receipt Date: 20160714
  Transmission Date: 20161109
  Serious: No
  Sender: FDA-Public Use
  Company Number: US-PFIZER INC-2015450905

PATIENT
  Age: 75 Year
  Sex: Female

DRUGS (38)
  1. METADATE CD [Concomitant]
     Active Substance: METHYLPHENIDATE HYDROCHLORIDE
     Dosage: 20 MG, 3X/DAY (TAKE TWO CAPSULES BY MOUTH IN THE MORNING BEFORE BREAKFAST)
     Route: 048
     Dates: start: 20160426
  2. RITALIN [Concomitant]
     Active Substance: METHYLPHENIDATE HYDROCHLORIDE
     Dosage: 10 MG, DAILY (ONE TABLET AT 2 PM DAILY)
     Dates: start: 20160204
  3. REGLAN [Concomitant]
     Active Substance: METOCLOPRAMIDE HYDROCHLORIDE
     Dosage: UNK
     Dates: start: 20151012
  4. MIRALAX [Concomitant]
     Active Substance: POLYETHYLENE GLYCOL 3350
     Dosage: 17 G, AS NEEDED 3  TIMES DAILY
     Route: 048
     Dates: start: 20160105
  5. DELTASONE [Concomitant]
     Active Substance: PREDNISONE
     Dosage: UNK
     Route: 048
  6. PHENERGAN [Concomitant]
     Active Substance: PROMETHAZINE HYDROCHLORIDE
     Indication: NAUSEA
     Dosage: 25 MG, AS NEEDED Q4 HOURS
     Route: 048
     Dates: start: 20130726
  7. LYRICA [Suspect]
     Active Substance: PREGABALIN
     Indication: NEUROPATHY PERIPHERAL
     Dosage: 150 MG, 2X/DAY
     Route: 048
  8. LYRICA [Suspect]
     Active Substance: PREGABALIN
     Indication: GAIT DISTURBANCE
     Dosage: 150 MG, 2X/DAY
     Dates: start: 20160426
  9. FLUZONE HIGH-DOSE 2015-16 [Concomitant]
     Dosage: UNK
     Dates: start: 20150922
  10. ENULOSE [Concomitant]
     Active Substance: LACTULOSE
     Dosage: UNK
     Dates: start: 20160212
  11. MS CONTIN [Concomitant]
     Active Substance: MORPHINE SULFATE
     Indication: NEUROPATHY PERIPHERAL
     Dosage: 30 MG, 2X/DAY
     Route: 048
  12. BENTYL [Concomitant]
     Active Substance: DICYCLOMINE HYDROCHLORIDE
     Indication: ABDOMINAL PAIN UPPER
     Dosage: 20 MG, AS NEEDED
     Route: 048
  13. FLUOROMETHOLONE. [Concomitant]
     Active Substance: FLUOROMETHOLONE
     Dosage: 1 DROP INTO BOTH EYES 2 TIMES DAILY
     Route: 047
     Dates: start: 20160211
  14. PRESERVISION AREDS [Concomitant]
     Active Substance: MINERALS\VITAMINS
     Dosage: UNK, DAILY
     Route: 048
  15. WELLBUTRIN XL [Concomitant]
     Active Substance: BUPROPION HYDROCHLORIDE
     Dosage: 150 MG, DAILY
     Route: 048
     Dates: start: 20151011
  16. CYANOCOBALAMIN. [Concomitant]
     Active Substance: CYANOCOBALAMIN
     Dosage: AS DIRECTED
  17. RESTASIS [Concomitant]
     Active Substance: CYCLOSPORINE
     Dosage: 1 DROP INTO BOTH EYES 2 TIMES DAILY
     Route: 047
     Dates: start: 20160225
  18. VICODIN [Concomitant]
     Active Substance: ACETAMINOPHEN\HYDROCODONE BITARTRATE
     Indication: PAIN
     Dosage: 1 TABLET ORAL EVERY 6 HOURS AS NEEDED [HYDROCODONE- 5MG]; [ACETAMINOPHEN-500MG]
     Route: 048
     Dates: start: 20160226
  19. ZOFRAN-ODT [Concomitant]
     Dosage: 8 MG, DAILY AS NEEDED
     Route: 048
  20. PHENERGAN [Concomitant]
     Active Substance: PROMETHAZINE HYDROCHLORIDE
     Indication: VOMITING
  21. ZOSTAVAX [Concomitant]
     Active Substance: VARICELLA-ZOSTER VIRUS STRAIN OKA/MERCK LIVE ANTIGEN
     Dosage: UNK (PF, 19,400 UNIT/0.65 ML INJECTION)
     Dates: start: 20150922
  22. MORPHINE [Concomitant]
     Active Substance: MORPHINE
     Indication: PAIN
     Dosage: UNK
  23. METHAMPHETAMINE [Concomitant]
     Active Substance: METHAMPHETAMINE
     Indication: CENTRAL NERVOUS SYSTEM STIMULATION
     Dosage: UNK
  24. LIPITOR [Concomitant]
     Active Substance: ATORVASTATIN CALCIUM
     Indication: HYPERCHOLESTEROLAEMIA
     Dosage: 20 MG, DAILY
     Route: 048
     Dates: start: 20151208
  25. REFRESH OPTIVE [Concomitant]
     Active Substance: CARBOXYMETHYLCELLULOSE SODIUM\GLYCERIN
     Dosage: 1 DROP INTO BOTH EYES 4 TIMES AS NEEDED
  26. CYANOCOBALAMIN. [Concomitant]
     Active Substance: CYANOCOBALAMIN
     Dosage: 100 UG, UNK
     Dates: start: 20151102
  27. ENSURE [Concomitant]
     Active Substance: AMINO ACIDS\DEXTROSE\ELECTROLYTES NOS\SOYBEAN OIL\VITAMINS
     Dosage: UNK
     Route: 048
  28. LYRICA [Suspect]
     Active Substance: PREGABALIN
     Indication: NEURALGIA
     Dosage: 150 MG, 2X/DAY
     Route: 048
     Dates: start: 20151208
  29. XANAX [Concomitant]
     Active Substance: ALPRAZOLAM
     Indication: ANXIETY
     Dosage: 1 MG, 2X/DAY
     Route: 048
  30. NORVASC [Concomitant]
     Active Substance: AMLODIPINE BESYLATE
     Dosage: 10 MG, DAILY
     Route: 048
     Dates: start: 20160426
  31. ALAWAY [Concomitant]
     Active Substance: KETOTIFEN FUMARATE
     Dosage: 1 GTT, 2X/DAY
     Route: 047
  32. COMPAZINE [Concomitant]
     Active Substance: PROCHLORPERAZINE MALEATE
     Dosage: 10 MG, EVERY 6 HOURS AS NEEDED
     Route: 048
     Dates: start: 20160426
  33. AMBIEN [Concomitant]
     Active Substance: ZOLPIDEM TARTRATE
     Indication: INSOMNIA
     Dosage: 5 MG, AS NEEDED (NIGHTLY)
     Route: 048
  34. AMITIZA [Concomitant]
     Active Substance: LUBIPROSTONE
     Dosage: UNK
     Dates: start: 20150921
  35. CELEXA [Concomitant]
     Active Substance: CITALOPRAM HYDROBROMIDE
     Indication: DEPRESSION
     Dosage: 40 MG, DAILY
     Route: 048
  36. SYNTHROID [Concomitant]
     Active Substance: LEVOTHYROXINE SODIUM
     Indication: HYPOTHYROIDISM
     Dosage: 50 UG, DAILY (TAKE ON EMPTY STOMACH IN AM 30-60 MINUTES BEFORE EATING)
     Route: 048
  37. LEVOTHROID [Concomitant]
     Active Substance: LEVOTHYROXINE SODIUM
     Indication: HYPOTHYROIDISM
     Dosage: 50 UG, DAILY (TAKE ON EMPTY STOMACH IN AM 30-60 MINUTES BEFORE EATING)
     Route: 048
  38. REFRESH OPTIVE ADVANCED OPHTH [Concomitant]
     Dosage: UNK UNK, 4X/DAY
     Route: 047

REACTIONS (4)
  - Nausea [Recovering/Resolving]
  - Drug tolerance [Unknown]
  - Withdrawal syndrome [Unknown]
  - Malaise [Unknown]

NARRATIVE: CASE EVENT DATE: 2015
